FAERS Safety Report 19629243 (Version 2)
Quarter: 2021Q4

REPORT INFORMATION
  Report Type: Other
  Country: DE (occurrence: None)
  Receive Date: 20210729
  Receipt Date: 20211203
  Transmission Date: 20220303
  Serious: Yes (Other)
  Sender: FDA-Public Use
  Company Number: DE-ROCHE-2874900

PATIENT
  Age: 69 Year
  Sex: Female
  Weight: 86 kg

DRUGS (5)
  1. OCRELIZUMAB [Suspect]
     Active Substance: OCRELIZUMAB
     Indication: Relapsing multiple sclerosis
     Route: 042
     Dates: start: 20201105
  2. BACLOFEN [Concomitant]
     Active Substance: BACLOFEN
     Indication: Muscle spasticity
     Route: 048
     Dates: start: 20150916
  3. TERIFLUNOMIDE [Concomitant]
     Active Substance: TERIFLUNOMIDE
  4. DIMETHYL FUMARATE [Concomitant]
     Active Substance: DIMETHYL FUMARATE
  5. DALFAMPRIDINE [Concomitant]
     Active Substance: DALFAMPRIDINE
     Route: 048
     Dates: start: 20121029

REACTIONS (1)
  - Device related infection [Recovered/Resolved]

NARRATIVE: CASE EVENT DATE: 20201111
